FAERS Safety Report 23229831 (Version 1)
Quarter: 2023Q4

REPORT INFORMATION
  Report Type: Spontaneous
  Country: US (occurrence: None)
  Receive Date: 20231127
  Receipt Date: 20231127
  Transmission Date: 20240110
  Serious: No
  Sender: FDA-Public Use
  Company Number: US-ROCHE-3310595

PATIENT
  Sex: Female

DRUGS (7)
  1. LUCENTIS [Suspect]
     Active Substance: RANIBIZUMAB
     Indication: Diabetic retinal oedema
     Route: 050
     Dates: start: 201409, end: 201501
  2. AVASTIN [Suspect]
     Active Substance: BEVACIZUMAB
     Indication: Diabetic retinal oedema
     Route: 050
     Dates: start: 201703, end: 201707
  3. AVASTIN [Suspect]
     Active Substance: BEVACIZUMAB
     Route: 050
     Dates: start: 20210120, end: 20210120
  4. VABYSMO [Suspect]
     Active Substance: FARICIMAB\FARICIMAB-SVOA
     Indication: Diabetic retinal oedema
     Dosage: DOSE OF 6MG/0.05ML
     Route: 050
     Dates: start: 20220413
  5. VABYSMO [Suspect]
     Active Substance: FARICIMAB\FARICIMAB-SVOA
     Route: 050
     Dates: start: 20220808
  6. OZURDEX [Concomitant]
     Active Substance: DEXAMETHASONE
     Route: 050
     Dates: start: 201806
  7. OZURDEX [Concomitant]
     Active Substance: DEXAMETHASONE
     Route: 050
     Dates: start: 202101

REACTIONS (2)
  - Off label use [Unknown]
  - No adverse event [Unknown]
